FAERS Safety Report 5368613-0 (Version None)
Quarter: 2007Q2

REPORT INFORMATION
  Report Type: 
  Country: None (occurrence: None)
  Receive Date: 20070625
  Receipt Date: 20070213
  Transmission Date: 20071010
  Serious: No
  Sender: FDA-Public Use
  Company Number: US-ASTRAZENECA-2007UW01297

PATIENT
  Age: 44 Year
  Sex: Female
  Weight: 52.2 kg

DRUGS (9)
  1. PULMICORT [Suspect]
     Indication: ASTHMA
     Route: 055
     Dates: start: 20070112, end: 20070123
  2. ADVAIR DISKUS 100/50 [Suspect]
     Indication: ASTHMA
     Route: 055
     Dates: start: 20061205, end: 20070112
  3. ADVAIR DISKUS 100/50 [Suspect]
     Route: 055
     Dates: start: 20070123
  4. PRILOSEC [Concomitant]
  5. ULTRAM [Concomitant]
  6. ZINC [Concomitant]
  7. LEXAPRO [Concomitant]
     Dates: end: 20070121
  8. CLONAZEPAM [Concomitant]
  9. DECONGESTANT [Concomitant]

REACTIONS (15)
  - CHEST PAIN [None]
  - DISORIENTATION [None]
  - EAR PAIN [None]
  - FACIAL PAIN [None]
  - HEADACHE [None]
  - MENINGISM [None]
  - NASOPHARYNGITIS [None]
  - NAUSEA [None]
  - NECK PAIN [None]
  - PHARYNGEAL OEDEMA [None]
  - RESPIRATORY TRACT INFECTION [None]
  - RHINORRHOEA [None]
  - THROAT TIGHTNESS [None]
  - VISION BLURRED [None]
  - VOMITING [None]
